FAERS Safety Report 6444785-1 (Version None)
Quarter: 2009Q4

REPORT INFORMATION
  Report Type: 
  Country: None (occurrence: None)
  Receive Date: 20091118
  Receipt Date: 20091112
  Transmission Date: 20100525
  Serious: Yes (Hospitalization)
  Sender: FDA-Public Use
  Company Number: B0605260A

PATIENT
  Sex: Male

DRUGS (6)
  1. WELLBUTRIN SR [Suspect]
     Indication: DEPRESSION
     Route: 048
     Dates: start: 20031008, end: 20031209
  2. ATIVAN [Concomitant]
     Dates: start: 20031202
  3. RISPERDAL [Concomitant]
     Dates: start: 20031202
  4. DEPAKOTE [Concomitant]
     Dates: start: 20031008, end: 20031201
  5. TOPAMAX [Concomitant]
     Dates: start: 20031202, end: 20031209
  6. BENZTROPINE MESYLATE [Concomitant]
     Dates: start: 20031209, end: 20031209

REACTIONS (2)
  - MAJOR DEPRESSION [None]
  - SCHIZOPHRENIA SIMPLE [None]
